FAERS Safety Report 10339693 (Version 2)
Quarter: 2014Q3

REPORT INFORMATION
  Report Type: Report from Study
  Country: BR (occurrence: BR)
  Receive Date: 20140724
  Receipt Date: 20140724
  Transmission Date: 20150326
  Serious: Yes (Life-Threatening, Hospitalization, Other)
  Sender: FDA-Public Use
  Company Number: BR-GLAXOSMITHKLINE-A0806036A

PATIENT
  Age: 73 Year
  Sex: Female
  Weight: 65 kg

DRUGS (7)
  1. AMITRIPTYLINE [Concomitant]
     Active Substance: AMITRIPTYLINE
     Indication: DEPRESSION
     Dosage: 25MG PER DAY
     Route: 048
     Dates: start: 1999
  2. DIABENESE [Concomitant]
     Indication: DIABETES MELLITUS
     Dosage: 250MG TWICE PER DAY
     Route: 048
     Dates: start: 1991
  3. CAPTOPRIL. [Concomitant]
     Active Substance: CAPTOPRIL
     Indication: HYPERTENSION
     Dosage: 25MG THREE TIMES PER DAY
     Route: 048
     Dates: start: 1991
  4. TICLOPIDINE [Concomitant]
     Active Substance: TICLOPIDINE
     Indication: ISCHAEMIC STROKE
     Dosage: 250MG PER DAY
     Route: 048
     Dates: start: 2000
  5. LAPATINIB [Suspect]
     Active Substance: LAPATINIB
     Indication: BREAST CANCER
     Dosage: 1000MG PER DAY
     Route: 048
     Dates: start: 20090826, end: 20090828
  6. TRASTUZUMAB [Suspect]
     Active Substance: TRASTUZUMAB
     Indication: BREAST CANCER
     Dosage: 6MGK EVERY 3 WEEKS
     Route: 042
     Dates: start: 20090826, end: 20090826
  7. PRINIVIL [Concomitant]
     Active Substance: LISINOPRIL
     Indication: HYPERTENSION
     Dosage: 5MG PER DAY
     Route: 048
     Dates: start: 1991

REACTIONS (9)
  - Pleural effusion [Unknown]
  - Haemodynamic instability [Unknown]
  - Bronchospasm [Unknown]
  - Cardiac failure [Recovered/Resolved]
  - Pneumonia [Recovered/Resolved]
  - Metastases to liver [Unknown]
  - Dyspnoea [Unknown]
  - Pulmonary congestion [Unknown]
  - Disease progression [Unknown]

NARRATIVE: CASE EVENT DATE: 20090828
